FAERS Safety Report 5099770-1 (Version None)
Quarter: 2006Q3

REPORT INFORMATION
  Report Type: 
  Country: None (occurrence: None)
  Receive Date: 20060908
  Receipt Date: 20010102
  Transmission Date: 20061208
  Serious: Yes (Hospitalization)
  Sender: FDA-Public Use
  Company Number: PHRM2001FR00442

PATIENT
  Age: 15 Year
  Sex: Female
  Weight: 36 kg

DRUGS (16)
  1. NEORAL [Suspect]
     Indication: LUNG TRANSPLANT
     Dosage: 275 MG, TID
     Route: 048
     Dates: start: 20001125
  2. NEORAL [Suspect]
     Dosage: 675 MG/DAY
     Route: 048
  3. NEORAL [Suspect]
     Dosage: 600 MG/DAY
     Route: 048
  4. PROPULSID [Suspect]
     Indication: REFLUX OESOPHAGITIS
     Dosage: 10 MG, BID
     Route: 048
     Dates: start: 20001220
  5. CELLCEPT [Concomitant]
     Indication: LUNG TRANSPLANT
     Dosage: 1.5 G, BID
  6. CELLCEPT [Concomitant]
     Dosage: 500 MG, BID
     Route: 048
  7. PREDNISONE TAB [Concomitant]
     Indication: LUNG TRANSPLANT
     Dosage: 25 MG DAILY
  8. PREDNISONE TAB [Concomitant]
     Dosage: 5 MG, BID
  9. TILDIEM - SLOW RELEASE ^SYNTHELABO^ [Concomitant]
     Dosage: 60 MG, BID
  10. GANCICLOVIR [Concomitant]
     Indication: CYTOMEGALOVIRUS INFECTION
     Dosage: 200 MG, BID
  11. BACTRIM DS [Concomitant]
     Indication: PROPHYLAXIS
     Dosage: 1 DFX3/WEEK
  12. ALIPASE [Concomitant]
     Indication: PANCREATIC INSUFFICIENCY
  13. TOCO [Concomitant]
  14. MULTIVITAMIN [Concomitant]
  15. FUMAFER [Concomitant]
  16. DIFRAREL [Concomitant]

REACTIONS (4)
  - DRUG INTERACTION [None]
  - DRUG LEVEL INCREASED [None]
  - DYSPEPSIA [None]
  - GASTROOESOPHAGEAL REFLUX DISEASE [None]
